FAERS Safety Report 9256654 (Version 2)
Quarter: 2013Q2

REPORT INFORMATION
  Report Type: Spontaneous
  Country: AU (occurrence: AU)
  Receive Date: 20130426
  Receipt Date: 20130606
  Transmission Date: 20140414
  Serious: Yes (Hospitalization)
  Sender: FDA-Public Use
  Company Number: AU-009507513-1304AUS015137

PATIENT
  Sex: Female

DRUGS (1)
  1. SAPHRIS [Suspect]
     Indication: DEPRESSION
     Dosage: DOSE UNSPEC
     Route: 060

REACTIONS (5)
  - Panic attack [Unknown]
  - Anxiety [Unknown]
  - Depressive symptom [Unknown]
  - Sedation [Unknown]
  - Off label use [Unknown]
